FAERS Safety Report 19367946 (Version 1)
Quarter: 2021Q2

REPORT INFORMATION
  Report Type: Spontaneous
  Country: US (occurrence: US)
  Receive Date: 20210602
  Receipt Date: 20210602
  Transmission Date: 20210717
  Serious: No
  Sender: FDA-Public Use
  Company Number: US-ROCHE-2659291

PATIENT
  Age: 34 Year
  Sex: Female

DRUGS (2)
  1. OCREVUS [Suspect]
     Active Substance: OCRELIZUMAB
     Indication: RELAPSING MULTIPLE SCLEROSIS
     Dosage: RECEIVED INFUSION 1/DOSE 1 300 MG IV IN AUGUST 2019. RECEIVED INFUSION 2/DOSE 1 300 MGIV ON SEPTEMBE
     Route: 042
     Dates: start: 20190801
  2. OCREVUS [Suspect]
     Active Substance: OCRELIZUMAB
     Dosage: RECEIVED INFUSION 3/DOSE 2 600 MG IV ON FEBRUARY 27, 2019.
     Route: 042
     Dates: start: 20190227

REACTIONS (3)
  - Skin hyperpigmentation [Unknown]
  - Rash pruritic [Unknown]
  - Paraesthesia oral [Unknown]
